FAERS Safety Report 6068277-7 (Version None)
Quarter: 2009Q1

REPORT INFORMATION
  Report Type: 
  Country: None (occurrence: None)
  Receive Date: 20090206
  Receipt Date: 20090129
  Transmission Date: 20090719
  Serious: Yes (Other)
  Sender: FDA-Public Use
  Company Number: PHHY2009US03514

PATIENT
  Sex: Male

DRUGS (3)
  1. GLEEVEC [Suspect]
     Indication: CHRONIC MYELOID LEUKAEMIA
     Dosage: 400 MG, QD
     Route: 048
  2. TOPRAL [Concomitant]
     Dosage: UNK
     Dates: start: 20050101
  3. TRICOR [Concomitant]
     Dosage: UNK
     Dates: start: 20050101

REACTIONS (3)
  - HYPERTENSION [None]
  - MALAISE [None]
  - VENTRICULAR EXTRASYSTOLES [None]
